FAERS Safety Report 7989750-8 (Version None)
Quarter: 2011Q4

REPORT INFORMATION
  Report Type: 
  Country: None (occurrence: None)
  Receive Date: 20111219
  Receipt Date: 20110719
  Transmission Date: 20120403
  Serious: No
  Sender: FDA-Public Use
  Company Number: US-ASTRAZENECA-2011SE42736

PATIENT
  Age: 46 Year
  Sex: Male
  Weight: 91.6 kg

DRUGS (12)
  1. ASPIRIN [Concomitant]
     Indication: CARDIAC DISORDER
  2. TRAZODONE HCL [Concomitant]
     Indication: INSOMNIA
  3. SERTRALINE HYDROCHLORIDE [Concomitant]
     Indication: ANXIETY
  4. LORAZEPAM [Concomitant]
     Indication: ANXIETY
  5. BENAZEPRIL HYDROCHLORIDE [Concomitant]
     Indication: CARDIAC DISORDER
  6. CRESTOR [Suspect]
     Route: 048
  7. CAZEDILLOL [Concomitant]
     Indication: HYPERTENSION
  8. NAPROSYN [Concomitant]
     Indication: BACK DISORDER
  9. SERTRALINE HYDROCHLORIDE [Concomitant]
     Indication: DEPRESSION
  10. SEROQUEL [Suspect]
     Route: 048
  11. OMEPRAZOLE [Concomitant]
     Indication: GASTRIC DISORDER
  12. NITROSTAT PASTE AND PATCH [Concomitant]
     Indication: CHEST PAIN

REACTIONS (1)
  - HEPATIC ENZYME INCREASED [None]
